FAERS Safety Report 9913192 (Version 1)
Quarter: 2014Q1

REPORT INFORMATION
  Report Type: Spontaneous
  Country: US (occurrence: None)
  Receive Date: 20140218
  Receipt Date: 20140218
  Transmission Date: 20141002
  Serious: No
  Sender: FDA-Public Use
  Company Number: None

PATIENT
  Age: 42 Year
  Sex: Female

DRUGS (1)
  1. TECFIDERA 240 MG BIOGEN IDEC [Suspect]
     Route: 048
     Dates: start: 20131121

REACTIONS (2)
  - Hot flush [None]
  - Pruritus [None]
